FAERS Safety Report 21788463 (Version 2)
Quarter: 2023Q1

REPORT INFORMATION
  Report Type: Spontaneous
  Country: US (occurrence: US)
  Receive Date: 20221228
  Receipt Date: 20230130
  Transmission Date: 20230418
  Serious: No
  Sender: FDA-Public Use
  Company Number: US-PFIZER INC-202201395794

PATIENT
  Age: 64 Year
  Sex: Female
  Weight: 57.596 kg

DRUGS (4)
  1. PAXLOVID [Suspect]
     Active Substance: NIRMATRELVIR\RITONAVIR
     Indication: COVID-19 treatment
     Dosage: [PF-07321332 300 MG]/[RITONAVIR 100 MG]; 2X/DAY
     Dates: start: 20221215, end: 20221220
  2. STRESS B [ASCORBIC ACID;VITAMIN B COMPLEX] [Concomitant]
     Dosage: UNK
     Dates: start: 20210104
  3. PROGESTERONE [Concomitant]
     Active Substance: PROGESTERONE
     Dosage: 175 MG, DAILY
  4. ESTROGENS\TESTOSTERONE [Concomitant]
     Active Substance: ESTROGENS\TESTOSTERONE
     Indication: Hormone replacement therapy
     Dosage: UNK
     Route: 061

REACTIONS (2)
  - COVID-19 [Recovered/Resolved]
  - Disease recurrence [Recovered/Resolved]

NARRATIVE: CASE EVENT DATE: 20221223
